FAERS Safety Report 17093070 (Version 1)
Quarter: 2019Q4

REPORT INFORMATION
  Report Type: Spontaneous
  Country: DE (occurrence: DE)
  Receive Date: 20191129
  Receipt Date: 20191129
  Transmission Date: 20200122
  Serious: Yes (Other)
  Sender: FDA-Public Use
  Company Number: DE-TEVA-2019-DE-1143036

PATIENT
  Age: 33 Year
  Sex: Female
  Weight: 58 kg

DRUGS (2)
  1. PANTOPRAZOL 40MG [Suspect]
     Active Substance: PANTOPRAZOLE SODIUM
     Indication: PRODUCT USED FOR UNKNOWN INDICATION
     Dosage: 80 MILLIGRAM DAILY; 40 M TBL 1-0-1
     Route: 048
     Dates: start: 20190905, end: 20191003
  2. CIMICIFUGA [Suspect]
     Active Substance: BLACK COHOSH
     Dosage: SHORT TAKE TIME
     Route: 048

REACTIONS (11)
  - Blood bilirubin increased [Unknown]
  - Weight decreased [Unknown]
  - Coagulation time abnormal [Unknown]
  - Acute hepatic failure [Not Recovered/Not Resolved]
  - Decreased appetite [Unknown]
  - Malaise [Unknown]
  - Asthenia [Unknown]
  - Hepatic enzyme increased [Unknown]
  - Nausea [Unknown]
  - Jaundice [Unknown]
  - Abdominal discomfort [Unknown]

NARRATIVE: CASE EVENT DATE: 20191010
